FAERS Safety Report 8538610-2 (Version None)
Quarter: 2012Q3

REPORT INFORMATION
  Report Type: 
  Country: None (occurrence: None)
  Receive Date: 20120726
  Receipt Date: 20120718
  Transmission Date: 20120928
  Serious: Yes (Hospitalization, Other)
  Sender: FDA-Public Use
  Company Number: US-009507513-1207USA002072

PATIENT

DRUGS (11)
  1. OXYCODONE HCL [Concomitant]
  2. COREG [Concomitant]
  3. REBETOL [Suspect]
     Indication: HEPATITIS C
     Dosage: 2 DF, BID
     Dates: start: 20120313, end: 20120701
  4. NIFEDIPINE [Concomitant]
  5. TEMAZEPAM [Concomitant]
  6. LISINOPRIL [Concomitant]
  7. FOSAMAX [Concomitant]
  8. REBETOL [Suspect]
     Dosage: 1 DF, BID
     Dates: start: 20120701
  9. AMITRIPTYLINE HCL [Concomitant]
  10. PEG-INTRON [Suspect]
     Indication: HEPATITIS C
     Dosage: UNK
     Dates: start: 20120313
  11. ASPIRIN [Concomitant]

REACTIONS (3)
  - HYPOTENSION [None]
  - LOSS OF CONSCIOUSNESS [None]
  - DIZZINESS [None]
